FAERS Safety Report 8939938 (Version 2)
Quarter: 2012Q4

REPORT INFORMATION
  Report Type: 
  Country: AU (occurrence: AU)
  Receive Date: 20121203
  Receipt Date: 20121207
  Transmission Date: 20130627
  Serious: Yes (Other)
  Sender: FDA-Public Use
  Company Number: AU-009507513-1211AUS012383

PATIENT
  Age: 92 Year
  Sex: Female

DRUGS (5)
  1. ALENDRONATE SODIUM [Suspect]
     Indication: OSTEOPOROSIS
     Dosage: 70 mg, qw
     Route: 048
  2. ALENDRONATE SODIUM [Suspect]
     Dosage: 10 mg, qd
     Route: 048
  3. CALCIUM CARBONATE [Concomitant]
     Dosage: 1200 mg, 2 times
  4. ERGOCALCIFEROL [Concomitant]
     Dosage: 2000 Unit, per day
  5. PHENYTOIN SODIUM [Concomitant]
     Dosage: 230 mg, qd

REACTIONS (2)
  - Convulsion [Recovered/Resolved]
  - Hypocalcaemia [Recovered/Resolved]
